FAERS Safety Report 6131544-2 (Version None)
Quarter: 2009Q1

REPORT INFORMATION
  Report Type: 
  Country: None (occurrence: None)
  Receive Date: 20090325
  Receipt Date: 20081002
  Transmission Date: 20090719
  Serious: Yes (Death)
  Sender: FDA-Public Use
  Company Number: US-BRISTOL-MYERS SQUIBB COMPANY-14349781

PATIENT
  Age: 76 Year
  Sex: Male

DRUGS (12)
  1. ERBITUX [Suspect]
     Indication: LUNG NEOPLASM MALIGNANT
     Dates: start: 20080922
  2. DIPHENHYDRAMINE [Concomitant]
     Indication: PREMEDICATION
     Route: 042
  3. DEXAMETHASONE TAB [Concomitant]
     Indication: PREMEDICATION
     Route: 042
  4. DOCUSATE SODIUM [Concomitant]
  5. TRAMADOL HCL [Concomitant]
  6. SIMVASTATIN [Concomitant]
  7. GLIBENCLAMIDE [Concomitant]
  8. CARVEDILOL [Concomitant]
  9. ENALAPRIL MALEATE [Concomitant]
  10. FUROSEMIDE [Concomitant]
  11. DILTIAZEM HCL [Concomitant]
  12. ACETYLSALICYLIC ACID [Concomitant]

REACTIONS (1)
  - INFUSION RELATED REACTION [None]
